FAERS Safety Report 25537418 (Version 1)
Quarter: 2025Q3

REPORT INFORMATION
  Report Type: Spontaneous
  Country: EU (occurrence: EU)
  Receive Date: 20250710
  Receipt Date: 20250710
  Transmission Date: 20251021
  Serious: Yes (Disabling, Other)
  Sender: AUROBINDO
  Company Number: EU-LRB-01067285

PATIENT
  Age: 95 Year
  Sex: Female

DRUGS (1)
  1. FUROSEMIDE [Suspect]
     Active Substance: FUROSEMIDE
     Indication: Cardiac failure
     Dosage: 40 MILLIGRAM, ONCE A DAY
     Route: 048
     Dates: start: 20250605, end: 20250606

REACTIONS (1)
  - Deafness bilateral [Not Recovered/Not Resolved]
